FAERS Safety Report 6535168-4 (Version None)
Quarter: 2010Q1

REPORT INFORMATION
  Report Type: 
  Country: None (occurrence: None)
  Receive Date: 20100113
  Receipt Date: 20090414
  Transmission Date: 20100710
  Serious: No
  Sender: FDA-Public Use
  Company Number: A0826503A

PATIENT
  Age: 55 Year
  Sex: Female

DRUGS (3)
  1. SOLAGE [Suspect]
     Indication: SKIN HYPERPIGMENTATION
     Route: 061
     Dates: start: 20090403, end: 20090407
  2. LEVOTHYROXINE SODIUM [Concomitant]
  3. PURICAN [Concomitant]

REACTIONS (6)
  - APPLICATION SITE BLEEDING [None]
  - APPLICATION SITE DISCOLOURATION [None]
  - APPLICATION SITE ERYTHEMA [None]
  - APPLICATION SITE PAIN [None]
  - APPLICATION SITE REACTION [None]
  - APPLICATION SITE SCAB [None]
